FAERS Safety Report 4600918-0 (Version None)
Quarter: 2005Q1

REPORT INFORMATION
  Report Type: 
  Country: None (occurrence: None)
  Receive Date: 20050127
  Receipt Date: 20041022
  Transmission Date: 20050727
  Serious: No
  Sender: FDA-Public Use
  Company Number: USA041082008

PATIENT
  Age: 44 Year
  Sex: Female

DRUGS (2)
  1. STRATTERA [Suspect]
     Indication: ATTENTION DEFICIT/HYPERACTIVITY DISORDER
     Dosage: 40 MG AT BEDTIME
     Dates: start: 20030201
  2. ADDERALL XR 15 [Concomitant]

REACTIONS (3)
  - BLOOD PRESSURE INCREASED [None]
  - EAR INFECTION [None]
  - OEDEMA PERIPHERAL [None]
